FAERS Safety Report 12921075 (Version 1)
Quarter: 2016Q4

REPORT INFORMATION
  Report Type: Spontaneous
  Country: DE (occurrence: DE)
  Receive Date: 20161107
  Receipt Date: 20161107
  Transmission Date: 20170207
  Serious: Yes (Congenital Anomaly)
  Sender: FDA-Public Use
  Company Number: DE-TEVA-707535GER

PATIENT
  Age: 1 Day
  Sex: Male

DRUGS (2)
  1. FOLIO FORTE (NEM) [Concomitant]
     Indication: PROPHYLAXIS OF NEURAL TUBE DEFECT
     Dosage: .8 MILLIGRAM DAILY;
     Route: 064
     Dates: start: 20151014, end: 20160711
  2. LAMOTRIGIN [Suspect]
     Active Substance: LAMOTRIGINE
     Indication: EPILEPSY
     Dosage: INITIAL DOSAGE 100MG/D, FROM GW 11+1 200MG/D, FROM GW 19+6 400MG/D
     Route: 064
     Dates: start: 20151014, end: 20160711

REACTIONS (2)
  - Foetal exposure during pregnancy [Unknown]
  - Anal atresia [Recovered/Resolved with Sequelae]

NARRATIVE: CASE EVENT DATE: 20160711
